FAERS Safety Report 5309602-1 (Version None)
Quarter: 2007Q2

REPORT INFORMATION
  Report Type: 
  Country: None (occurrence: None)
  Receive Date: 20070424
  Receipt Date: 20070411
  Transmission Date: 20071010
  Serious: No
  Sender: FDA-Public Use
  Company Number: MC200700309

PATIENT
  Age: 75 Year
  Sex: Male

DRUGS (1)
  1. ANGIOMAX [Suspect]
     Indication: HEPARIN-INDUCED THROMBOCYTOPENIA
     Dosage: SEE IMAGE
     Dates: end: 20070411

REACTIONS (4)
  - ACTIVATED PARTIAL THROMBOPLASTIN TIME PROLONGED [None]
  - GASTROINTESTINAL HAEMORRHAGE [None]
  - GASTROINTESTINAL PERFORATION [None]
  - RENAL FAILURE [None]
